FAERS Safety Report 9151759 (Version 1)
Quarter: 2013Q1

REPORT INFORMATION
  Report Type: Spontaneous
  Country: DE (occurrence: DE)
  Receive Date: 20130308
  Receipt Date: 20130308
  Transmission Date: 20140127
  Serious: Yes (Other)
  Sender: FDA-Public Use
  Company Number: DE-BAYER-2013-007015

PATIENT
  Age: 78 Year
  Sex: Male

DRUGS (5)
  1. CIPROBAY [Suspect]
     Indication: DIVERTICULITIS
     Dosage: 500 MG, BID
  2. METRONIDAZOL [Interacting]
  3. MARCUMAR [Concomitant]
     Indication: PULMONARY EMBOLISM
  4. MARCUMAR [Concomitant]
     Indication: THROMBOSIS
  5. LORZAAR [Concomitant]

REACTIONS (5)
  - Inappropriate schedule of drug administration [None]
  - Circulatory collapse [None]
  - Asthenia [None]
  - Visual impairment [None]
  - Drug interaction [None]
